FAERS Safety Report 5339004-3 (Version None)
Quarter: 2007Q2

REPORT INFORMATION
  Report Type: 
  Country: None (occurrence: None)
  Receive Date: 20070405
  Receipt Date: 20061120
  Transmission Date: 20071010
  Serious: No
  Sender: FDA-Public Use
  Company Number: US200611003657

PATIENT
  Sex: Female

DRUGS (7)
  1. CYMBALTA [Suspect]
     Indication: ARTHRALGIA
     Route: 048
     Dates: start: 20060101, end: 20060101
  2. CYMBALTA [Suspect]
     Indication: ARTHRALGIA
     Route: 048
     Dates: start: 20060101, end: 20060101
  3. CYMBALTA [Suspect]
     Indication: ARTHRALGIA
     Route: 048
     Dates: start: 20060101
  4. WELLBUTRIN (IBUPROPION HYDROCHLORIDE) [Concomitant]
  5. LEXAPRO/USA/ (ESCITALOPRAM) [Concomitant]
  6. CLONAZEPAM [Concomitant]
  7. NEURONTIN [Concomitant]

REACTIONS (6)
  - FOLLICULITIS [None]
  - PRURITUS [None]
  - RASH [None]
  - RASH PAPULAR [None]
  - SCAR [None]
  - SOMNOLENCE [None]
